FAERS Safety Report 8140928-2 (Version None)
Quarter: 2012Q1

REPORT INFORMATION
  Report Type: 
  Country: None (occurrence: None)
  Receive Date: 20120216
  Receipt Date: 20120214
  Transmission Date: 20120608
  Serious: Yes (Life-Threatening)
  Sender: FDA-Public Use
  Company Number: GB-ABBOTT-12P-167-0904675-00

PATIENT
  Age: 49 Year
  Sex: Female

DRUGS (3)
  1. HUMIRA [Suspect]
     Indication: RHEUMATOID ARTHRITIS
     Dosage: 1 IN 2 WEEKS, 3 INJECTIONS
     Route: 058
     Dates: start: 20110828, end: 20111011
  2. METHOTREXATE [Concomitant]
     Dosage: LONG TERM
     Route: 058
  3. METHOTREXATE [Concomitant]
     Indication: PRODUCT USED FOR UNKNOWN INDICATION
     Dosage: LONG TERM,  1 IN 1 WEEK
     Route: 058
     Dates: start: 20110201

REACTIONS (1)
  - PNEUMONITIS [None]
